FAERS Safety Report 20124763 (Version 1)
Quarter: 2021Q4

REPORT INFORMATION
  Report Type: Spontaneous
  Country: VE (occurrence: VE)
  Receive Date: 20211129
  Receipt Date: 20211129
  Transmission Date: 20220303
  Serious: Yes (Hospitalization)
  Sender: FDA-Public Use
  Company Number: VE-ALVOGEN-2021-ALVOGEN-117831

PATIENT
  Age: 48 Year
  Sex: Male

DRUGS (1)
  1. DEXAMETHASONE [Suspect]
     Active Substance: DEXAMETHASONE
     Indication: COVID-19

REACTIONS (2)
  - Mania [Recovered/Resolved]
  - Anxiety [Recovered/Resolved]
